FAERS Safety Report 12643599 (Version 2)
Quarter: 2016Q3

REPORT INFORMATION
  Report Type: Report from Study
  Country: BR (occurrence: BR)
  Receive Date: 20160811
  Receipt Date: 20160812
  Transmission Date: 20161109
  Serious: Yes (Death)
  Sender: FDA-Public Use
  Company Number: PHHY2016BR109400

PATIENT
  Age: 88 Year
  Sex: Female
  Weight: 65 kg

DRUGS (2)
  1. EXELON PATCH [Suspect]
     Active Substance: RIVASTIGMINE
     Indication: MEMORY IMPAIRMENT
     Dosage: PATCH 5 (CM2), QD
     Route: 062
     Dates: start: 201507, end: 20151008
  2. EXELON PATCH [Suspect]
     Active Substance: RIVASTIGMINE
     Indication: DEMENTIA ALZHEIMER^S TYPE

REACTIONS (2)
  - Infection [Fatal]
  - Septic shock [Fatal]

NARRATIVE: CASE EVENT DATE: 20151010
